FAERS Safety Report 5276427-5 (Version None)
Quarter: 2007Q1

REPORT INFORMATION
  Report Type: 
  Country: None (occurrence: None)
  Receive Date: 20061213
  Receipt Date: 20030918
  Transmission Date: 20070707
  Serious: Yes (Hospitalization)
  Sender: FDA-Public Use
  Company Number: 2003UW11988

PATIENT
  Age: 60 Year
  Sex: Male

DRUGS (2)
  1. SEROQUEL [Suspect]
     Dosage: GREATER THAN 200 MG
  2. DEPAKOTE [Concomitant]

REACTIONS (2)
  - AKATHISIA [None]
  - PARKINSONISM [None]
